FAERS Safety Report 20572757 (Version 3)
Quarter: 2022Q2

REPORT INFORMATION
  Report Type: Spontaneous
  Country: FR (occurrence: FR)
  Receive Date: 20220309
  Receipt Date: 20220507
  Transmission Date: 20220721
  Serious: Yes (Hospitalization, Other)
  Sender: FDA-Public Use
  Company Number: FR-AFSSAPS-AVNT20220117

PATIENT
  Age: 23 Year
  Sex: Female

DRUGS (17)
  1. BROMAZEPAM [Suspect]
     Active Substance: BROMAZEPAM
     Indication: Product used for unknown indication
     Dosage: 15 MILLIGRAM, ONCE A DAY
     Route: 048
  2. BROMAZEPAM [Suspect]
     Active Substance: BROMAZEPAM
     Indication: Boredom
  3. BROMAZEPAM [Suspect]
     Active Substance: BROMAZEPAM
     Indication: Anxiolytic therapy
  4. BROMAZEPAM [Suspect]
     Active Substance: BROMAZEPAM
     Indication: Anhedonia
  5. CANNABIS SATIVA SUBSP. INDICA TOP [Suspect]
     Active Substance: CANNABIS SATIVA SUBSP. INDICA TOP
     Indication: Product used for unknown indication
     Dosage: 10 DOSAGE FORM, ONCE A DAY
     Route: 055
  6. CAFFEINE [Suspect]
     Active Substance: CAFFEINE
     Indication: Product used for unknown indication
     Dosage: 200 MILLIGRAM, ONCE A DAY
     Route: 048
  7. CAFFEINE [Suspect]
     Active Substance: CAFFEINE
     Indication: Fatigue
  8. CLONAZEPAM [Suspect]
     Active Substance: CLONAZEPAM
     Indication: Product used for unknown indication
     Dosage: 3 ? 4 MG/J
     Route: 048
  9. CLONAZEPAM [Suspect]
     Active Substance: CLONAZEPAM
     Indication: Boredom
  10. CLONAZEPAM [Suspect]
     Active Substance: CLONAZEPAM
     Indication: Anhedonia
  11. CLONAZEPAM [Suspect]
     Active Substance: CLONAZEPAM
     Indication: Anxiolytic therapy
  12. KETAMINE [Suspect]
     Active Substance: KETAMINE
     Indication: Product used for unknown indication
     Dosage: 1 TO 2 TIMES/MONTH
     Route: 065
  13. LYSERGIDE [Suspect]
     Active Substance: LYSERGIDE
     Indication: Product used for unknown indication
     Dosage: 5 DOSAGE FORM(1 MONTH)
     Route: 048
  14. XANAX [Suspect]
     Active Substance: ALPRAZOLAM
     Indication: Product used for unknown indication
     Dosage: UNK
     Route: 048
  15. XANAX [Suspect]
     Active Substance: ALPRAZOLAM
     Indication: Anxiolytic therapy
  16. XANAX [Suspect]
     Active Substance: ALPRAZOLAM
     Indication: Boredom
  17. XANAX [Suspect]
     Active Substance: ALPRAZOLAM
     Indication: Anhedonia

REACTIONS (5)
  - Drug use disorder [Not Recovered/Not Resolved]
  - Product use in unapproved indication [Not Recovered/Not Resolved]
  - Cognitive disorder [Unknown]
  - Drug dependence [Unknown]
  - Antisocial behaviour [Unknown]
